FAERS Safety Report 7960472-2 (Version None)
Quarter: 2011Q4

REPORT INFORMATION
  Report Type: 
  Country: None (occurrence: None)
  Receive Date: 20111206
  Receipt Date: 20111129
  Transmission Date: 20120403
  Serious: Yes (Other)
  Sender: FDA-Public Use
  Company Number: PHHY2011GB96686

PATIENT
  Age: 40 Year
  Sex: Female
  Weight: 68 kg

DRUGS (2)
  1. CITALOPRAM [Suspect]
     Indication: DEPRESSION
     Dosage: 20 MG, QD
     Route: 048
     Dates: start: 20110615, end: 20110908
  2. CITALOPRAM [Suspect]
     Dosage: 40 MG, QD
     Route: 048
     Dates: start: 20110909, end: 20111017

REACTIONS (3)
  - GLOSSODYNIA [None]
  - TONGUE BITING [None]
  - CONVULSION [None]
